FAERS Safety Report 9434789 (Version 2)
Quarter: 2013Q3

REPORT INFORMATION
  Report Type: Spontaneous
  Country: US (occurrence: US)
  Receive Date: 20130801
  Receipt Date: 20130819
  Transmission Date: 20140515
  Serious: Yes (Other)
  Sender: FDA-Public Use
  Company Number: US-PFIZER INC-2013222650

PATIENT
  Age: 69 Year
  Sex: Female

DRUGS (11)
  1. XELJANZ [Suspect]
     Indication: RHEUMATOID ARTHRITIS
     Dosage: 5 MG, 2X/DAY
     Dates: start: 20130304, end: 20130604
  2. METHOTREXATE [Concomitant]
     Dosage: 2.5 MG
  3. FOLIC ACID [Concomitant]
     Dosage: 1 MG
  4. SIMVASTATIN [Concomitant]
     Dosage: 40 MG
  5. HYDROCHLOROTHIAZIDE [Concomitant]
     Dosage: 25 MG
  6. PREDNISONE [Concomitant]
     Dosage: 2.5 MG
  7. M.V.I. [Concomitant]
     Dosage: UNK
  8. CALCIUM [Concomitant]
     Dosage: UNK
  9. GLUCOSAMINE [Concomitant]
     Dosage: UNK
  10. METAMUCIL [Concomitant]
     Dosage: UNK
  11. CYMBALTA [Concomitant]
     Dosage: 60 MG

REACTIONS (2)
  - Rheumatoid arthritis [Recovered/Resolved]
  - Osteoarthritis [Recovered/Resolved]
